FAERS Safety Report 4595727-5 (Version None)
Quarter: 2005Q1

REPORT INFORMATION
  Report Type: 
  Country: None (occurrence: None)
  Receive Date: 20050224
  Receipt Date: 20050211
  Transmission Date: 20050727
  Serious: Yes (Other)
  Sender: FDA-Public Use
  Company Number: 2005EU000253

PATIENT
  Age: 64 Year
  Sex: Female
  Weight: 50 kg

DRUGS (4)
  1. PROTOPIC [Suspect]
     Indication: DERMATITIS ATOPIC
     Dosage: 60.00 UNK, WEEKLY, TOPICAL
     Route: 061
     Dates: start: 20030501, end: 20040301
  2. XIPAMIDE [Concomitant]
  3. ATERAX (HYDROXYZINE HYDROCHLORIDE) [Concomitant]
  4. CALCICHEW D3 (COLECALCIFEROL, CALCIUM CARBONATE) [Concomitant]

REACTIONS (5)
  - ADRENOCORTICAL INSUFFICIENCY ACUTE [None]
  - ANOREXIA [None]
  - ASTHENIA [None]
  - BLOOD CORTISOL DECREASED [None]
  - DYSPHAGIA [None]
